FAERS Safety Report 23165779 (Version 5)
Quarter: 2024Q1

REPORT INFORMATION
  Report Type: Report from Study
  Country: CA (occurrence: CA)
  Receive Date: 20231109
  Receipt Date: 20240321
  Transmission Date: 20240410
  Serious: Yes (Other)
  Sender: FDA-Public Use
  Company Number: CA-OTSUKA-2023_013652

PATIENT
  Sex: Female

DRUGS (2)
  1. ARIPIPRAZOLE [Suspect]
     Active Substance: ARIPIPRAZOLE
     Indication: Product used for unknown indication
     Dosage: 400 MG, EVERY 28 DAYS
     Route: 030
     Dates: start: 20230520
  2. ARIPIPRAZOLE [Suspect]
     Active Substance: ARIPIPRAZOLE
     Dosage: 300 MG, EVERY 28 DAYS
     Route: 030

REACTIONS (9)
  - Foetal growth restriction [Unknown]
  - Stress [Unknown]
  - Irritability [Unknown]
  - Dyspepsia [Unknown]
  - Tremor [Recovering/Resolving]
  - Anxiety [Unknown]
  - Headache [Unknown]
  - Maternal exposure during pregnancy [Unknown]
  - Inappropriate schedule of product administration [Unknown]
